FAERS Safety Report 12154621 (Version 3)
Quarter: 2016Q1

REPORT INFORMATION
  Report Type: Spontaneous
  Country: DE (occurrence: DE)
  Receive Date: 20160307
  Receipt Date: 20160315
  Transmission Date: 20160526
  Serious: Yes (Death, Life-Threatening)
  Sender: FDA-Public Use
  Company Number: PHHY2016DE027360

PATIENT
  Sex: Female
  Weight: 75 kg

DRUGS (3)
  1. BORTEZOMIB [Suspect]
     Active Substance: BORTEZOMIB
     Indication: PLASMA CELL MYELOMA
     Dosage: 1.3 MG, UNK
     Route: 065
     Dates: start: 201511, end: 20151231
  2. HEPARIN [Suspect]
     Active Substance: HEPARIN SODIUM
     Indication: DIALYSIS
     Dosage: 20000 IU, QD
     Route: 042
     Dates: start: 201511, end: 20160101
  3. FARYDAK [Suspect]
     Active Substance: PANOBINOSTAT
     Indication: PLASMA CELL MYELOMA
     Route: 048
     Dates: start: 20151116, end: 20160101

REACTIONS (5)
  - Basal ganglia haemorrhage [Fatal]
  - Sepsis [Unknown]
  - Multiple organ dysfunction syndrome [Unknown]
  - Thrombocytopenia [Unknown]
  - Systemic inflammatory response syndrome [Unknown]

NARRATIVE: CASE EVENT DATE: 20151223
